FAERS Safety Report 22850092 (Version 3)
Quarter: 2023Q4

REPORT INFORMATION
  Report Type: Spontaneous
  Country: US (occurrence: US)
  Receive Date: 20230822
  Receipt Date: 20231128
  Transmission Date: 20240110
  Serious: No
  Sender: FDA-Public Use
  Company Number: US-PFIZER INC-PV202300142079

PATIENT
  Age: 89 Year
  Sex: Female
  Weight: 80.454 kg

DRUGS (5)
  1. IBRANCE [Suspect]
     Active Substance: PALBOCICLIB
     Indication: Breast cancer stage III
     Dosage: 75 MG, CYCLIC (3 WEEKS ON, 1 WEEK OFF)
     Dates: start: 202304
  2. IBRANCE [Suspect]
     Active Substance: PALBOCICLIB
     Dosage: 75 MG (USE AS DIRECTED)
     Dates: start: 20160705
  3. IBRANCE [Suspect]
     Active Substance: PALBOCICLIB
     Dosage: 75 MG, CYCLIC (1 TABLET ONCE DAILY WITH OR WITHOUT FOOD ON DAYS 1-21 EVERY 28 DAY CYCLE)
     Route: 048
     Dates: start: 20231103
  4. IBRANCE [Suspect]
     Active Substance: PALBOCICLIB
     Dosage: 75 MG, CYCLIC (1 TABLET ONCE DAILY FOR 21 DAYS OUT OF A 28 DAY CYCLE)
     Route: 048
     Dates: start: 20231102
  5. LETROZOLE [Concomitant]
     Active Substance: LETROZOLE
     Dosage: 2.5 MG, DAILY
     Dates: start: 202303

REACTIONS (1)
  - Hypoacusis [Unknown]
